FAERS Safety Report 9663722 (Version 2)
Quarter: 2013Q4

REPORT INFORMATION
  Report Type: Report from Study
  Country: PL (occurrence: PL)
  Receive Date: 20131101
  Receipt Date: 20131101
  Transmission Date: 20140711
  Serious: Yes (Hospitalization)
  Sender: FDA-Public Use
  Company Number: PHHY2013PL098491

PATIENT
  Sex: Male

DRUGS (1)
  1. EXTAVIA [Suspect]
     Dosage: UNK UKN, UNK

REACTIONS (1)
  - Osteitis [Unknown]
